FAERS Safety Report 12678061 (Version 2)
Quarter: 2016Q3

REPORT INFORMATION
  Report Type: Spontaneous
  Country: US (occurrence: US)
  Receive Date: 20160823
  Receipt Date: 20160823
  Transmission Date: 20161109
  Serious: Yes (Other)
  Sender: FDA-Public Use
  Company Number: PHHY2016US108839

PATIENT
  Age: 53 Year
  Sex: Female

DRUGS (2)
  1. TERBINAFINE. [Suspect]
     Active Substance: TERBINAFINE
     Indication: TRICHOPHYTOSIS
     Dosage: 200 MG, QD
     Route: 048
  2. PACLITAXEL. [Suspect]
     Active Substance: PACLITAXEL
     Indication: CHEMOTHERAPY
     Dosage: 4 CYCLES
     Route: 065

REACTIONS (12)
  - Limb injury [Recovering/Resolving]
  - Erythema [Recovering/Resolving]
  - Trichophytosis [Recovering/Resolving]
  - Tinea manuum [Recovering/Resolving]
  - Pain [Recovering/Resolving]
  - Hyperkeratosis [Recovering/Resolving]
  - Skin exfoliation [Recovering/Resolving]
  - Liver function test increased [Recovering/Resolving]
  - Tinea pedis [Recovering/Resolving]
  - Skin plaque [Recovering/Resolving]
  - Haemorrhage [Recovering/Resolving]
  - Pruritus [Recovering/Resolving]
